FAERS Safety Report 7519007-0 (Version None)
Quarter: 2011Q2

REPORT INFORMATION
  Report Type: 
  Country: None (occurrence: None)
  Receive Date: 20110602
  Receipt Date: 20110531
  Transmission Date: 20111010
  Serious: Yes (Death, Hospitalization)
  Sender: FDA-Public Use
  Company Number: US-B.I. PHARMACEUTICALS,INC./RIDGEFIELD-2011-BP-14326BP

PATIENT
  Age: 81 Year
  Sex: Female

DRUGS (6)
  1. LASIX [Concomitant]
     Dates: end: 20110524
  2. PRADAXA [Suspect]
     Dates: start: 20110401, end: 20110524
  3. MACROBID [Concomitant]
     Dates: end: 20110524
  4. CRESTOR [Concomitant]
     Dates: end: 20110524
  5. ASPIRIN [Concomitant]
     Dates: end: 20110524
  6. JANUVIA [Concomitant]
     Dates: end: 20110524

REACTIONS (2)
  - COAGULOPATHY [None]
  - PROTHROMBIN TIME PROLONGED [None]
